FAERS Safety Report 12998319 (Version 3)
Quarter: 2017Q2

REPORT INFORMATION
  Report Type: Spontaneous
  Country: US (occurrence: US)
  Receive Date: 20161205
  Receipt Date: 20170427
  Transmission Date: 20170830
  Serious: No
  Sender: FDA-Public Use
  Company Number: US-PFIZER INC-2016554806

PATIENT
  Sex: Female

DRUGS (1)
  1. XELJANZ [Suspect]
     Active Substance: TOFACITINIB CITRATE
     Indication: RHEUMATOID ARTHRITIS
     Dosage: 5 MG, TWICE DAILY
     Route: 048
     Dates: start: 20151101

REACTIONS (5)
  - Drug ineffective [Unknown]
  - Panic attack [Unknown]
  - Musculoskeletal stiffness [Unknown]
  - Hypercholesterolaemia [Unknown]
  - Synovial disorder [Unknown]
